FAERS Safety Report 16274379 (Version 1)
Quarter: 2019Q2

REPORT INFORMATION
  Report Type: Spontaneous
  Country: US (occurrence: US)
  Receive Date: 20190504
  Receipt Date: 20190504
  Transmission Date: 20190711
  Serious: No
  Sender: FDA-Public Use
  Company Number: US-TEVA-2019-US-1045911

PATIENT
  Sex: Male

DRUGS (2)
  1. MEXILETINE [Suspect]
     Active Substance: MEXILETINE
     Indication: EXTRASYSTOLES
  2. MEXILETINE [Suspect]
     Active Substance: MEXILETINE
     Indication: HEART RATE IRREGULAR
     Dates: start: 20190425

REACTIONS (3)
  - Paraesthesia [Unknown]
  - Extrasystoles [Unknown]
  - Pruritus [Unknown]

NARRATIVE: CASE EVENT DATE: 20190425
